FAERS Safety Report 9260133 (Version 1)
Quarter: 2013Q2

REPORT INFORMATION
  Report Type: Spontaneous
  Country: US (occurrence: US)
  Receive Date: 20130429
  Receipt Date: 20130429
  Transmission Date: 20140414
  Serious: Yes (Other)
  Sender: FDA-Public Use
  Company Number: US-BAYER-2013-052029

PATIENT
  Age: 41 Year
  Sex: Female

DRUGS (3)
  1. YASMIN [Suspect]
  2. KEFLEX [Concomitant]
     Indication: CELLULITIS
  3. NSAID^S [Concomitant]
     Indication: CELLULITIS

REACTIONS (1)
  - Deep vein thrombosis [None]
